FAERS Safety Report 9578308 (Version 1)
Quarter: 2013Q4

REPORT INFORMATION
  Report Type: Spontaneous
  Country: US (occurrence: US)
  Receive Date: 20131001
  Receipt Date: 20131001
  Transmission Date: 20140711
  Serious: No
  Sender: FDA-Public Use
  Company Number: US-AMGEN-USASP2013012134

PATIENT
  Age: 56 Year
  Sex: Female
  Weight: 74.83 kg

DRUGS (30)
  1. ENBREL [Suspect]
     Indication: PSORIATIC ARTHROPATHY
     Dosage: 50 MG, 1 PEN SUBCUTANEOUSLY ONCE A WEEK
     Route: 058
  2. AMITRIPTYLIN [Concomitant]
     Dosage: 25 MG, UNK
  3. NORVASC [Concomitant]
     Dosage: 5 MG, UNK
  4. GABAPENTIN [Concomitant]
     Dosage: 100 MG, UNK
  5. PLAQUENIL                          /00072602/ [Concomitant]
     Dosage: 200 MG, UNK
  6. ARAVA [Concomitant]
     Dosage: 10 MG, UNK
  7. PRINIVIL [Concomitant]
     Dosage: 10 MG, UNK
  8. NADOLOL [Concomitant]
     Dosage: 20 MG, UNK
  9. ZOCOR [Concomitant]
     Dosage: 5 MG, UNK
  10. TOVIAZ [Concomitant]
     Dosage: 4 MG, UNK
  11. ZANAFLEX [Concomitant]
     Dosage: 2 MG, UNK
  12. FOSAMAX [Concomitant]
     Dosage: 70 MG, UNK
  13. BACTRIM [Concomitant]
     Dosage: 400-80 MG
  14. METFORMIN [Concomitant]
     Dosage: 500 MG, UNK
  15. DITROPAN [Concomitant]
     Dosage: 5 MG, UNK
  16. KLONOPIN [Concomitant]
     Dosage: 0.5 MG, UNK
  17. VALIUM                             /00017001/ [Concomitant]
     Dosage: 2 MG, UNK
  18. SOMA [Concomitant]
     Dosage: 250 MG, UNK
  19. TRIAMTERENE AND HYDROCHLOROTHIAZID [Concomitant]
     Dosage: 37.5-25
  20. PERCOCET                           /00446701/ [Concomitant]
     Dosage: 2.5-352
  21. VESICARE [Concomitant]
     Dosage: 5 MG, UNK
  22. PREDNISON [Concomitant]
     Dosage: 1 MG, UNK
  23. ESTROVEN [Concomitant]
     Dosage: UNK
  24. DICLOFENAC [Concomitant]
     Dosage: 25 MG, UNK
  25. WELLBUTRIN [Concomitant]
     Dosage: 75 MG, UNK
  26. LEFLUNOMIDE [Concomitant]
     Dosage: 10 MG, UNK
  27. FISH OIL [Concomitant]
     Dosage: UNK
  28. VITAMIN D                          /00107901/ [Concomitant]
     Dosage: 400 UNIT, UNK
  29. PROAIR HFA [Concomitant]
     Dosage: UNK
  30. ALBUTEROL                          /00139501/ [Concomitant]
     Dosage: 90 MUG, UNK

REACTIONS (2)
  - Sinus congestion [Unknown]
  - Respiratory tract congestion [Unknown]
